FAERS Safety Report 18782909 (Version 1)
Quarter: 2021Q1

REPORT INFORMATION
  Report Type: Spontaneous
  Country: US (occurrence: US)
  Receive Date: 20210125
  Receipt Date: 20210125
  Transmission Date: 20210419
  Serious: No
  Sender: FDA-Public Use
  Company Number: US-ALLERGAN-2047564US

PATIENT
  Sex: Male

DRUGS (1)
  1. RESTASIS [Suspect]
     Active Substance: CYCLOSPORINE
     Indication: DRY EYE
     Dosage: 1/2 VIAL IN AM AND THE OTHER 1/2 VIAL IN PM
     Route: 047
     Dates: start: 202010, end: 202011

REACTIONS (4)
  - Therapy cessation [Unknown]
  - Drug ineffective [Unknown]
  - Multiple use of single-use product [Unknown]
  - Dry eye [Not Recovered/Not Resolved]
